FAERS Safety Report 6048235-9 (Version None)
Quarter: 2009Q1

REPORT INFORMATION
  Report Type: 
  Country: None (occurrence: None)
  Receive Date: 20090123
  Receipt Date: 20090114
  Transmission Date: 20090719
  Serious: No
  Sender: FDA-Public Use
  Company Number: JP-BRISTOL-MYERS SQUIBB COMPANY-14456347

PATIENT
  Age: 60 Year
  Sex: Male
  Weight: 69 kg

DRUGS (11)
  1. ABILIFY [Suspect]
     Indication: BIPOLAR I DISORDER
     Dosage: TAB 6 MG
     Route: 048
     Dates: start: 20070801, end: 20071120
  2. ABILIFY [Suspect]
     Indication: SCHIZOPHRENIA
     Dosage: TAB 6 MG
     Route: 048
     Dates: start: 20070801, end: 20071120
  3. ZYPREXA [Suspect]
     Indication: BIPOLAR I DISORDER
     Dosage: 20MG/D-AUG2007-25DEC,15MG/D-26DEC07-05JAN,10MG/D-06JAN2008-ONG.
     Route: 048
     Dates: start: 20070801
  4. ZYPREXA [Suspect]
     Indication: SCHIZOPHRENIA
     Dosage: 20MG/D-AUG2007-25DEC,15MG/D-26DEC07-05JAN,10MG/D-06JAN2008-ONG.
     Route: 048
     Dates: start: 20070801
  5. TEGRETOL [Concomitant]
     Dosage: TAB
  6. HYPNOTICS NOS [Concomitant]
  7. SEDATIVE [Concomitant]
  8. BENZALIN [Concomitant]
     Dosage: TAB
     Dates: start: 20070801
  9. FLURAZEPAM HCL [Concomitant]
  10. VEGETAMIN A [Concomitant]
  11. DORAL [Concomitant]
     Dosage: TAB
     Dates: start: 20070801

REACTIONS (2)
  - COMPULSIONS [None]
  - OBSESSIVE THOUGHTS [None]
